FAERS Safety Report 9911461 (Version 5)
Quarter: 2014Q4

REPORT INFORMATION
  Report Type: Spontaneous
  Country: GB (occurrence: GB)
  Receive Date: 20140219
  Receipt Date: 20141208
  Transmission Date: 20150529
  Serious: Yes (Death, Other)
  Sender: FDA-Public Use
  Company Number: PHFR2014GB001563

PATIENT
  Age: 58 Year
  Sex: Female
  Weight: 88 kg

DRUGS (2)
  1. CLOZARIL [Suspect]
     Active Substance: CLOZAPINE
     Indication: SCHIZOPHRENIA
     Dosage: 450 MG, QD
     Route: 048
     Dates: start: 20010701
  2. AMISULPRIDE [Concomitant]
     Active Substance: AMISULPRIDE
     Indication: PRODUCT USED FOR UNKNOWN INDICATION
     Dosage: 300 MG, QD
     Route: 048

REACTIONS (10)
  - Atelectasis [Fatal]
  - Somnolence [Fatal]
  - Toxicity to various agents [Unknown]
  - Wound [Unknown]
  - Intentional self-injury [Unknown]
  - Drowning [Fatal]
  - Pulmonary congestion [Fatal]
  - Rib fracture [Unknown]
  - Lethargy [Unknown]
  - Antipsychotic drug level above therapeutic [Fatal]

NARRATIVE: CASE EVENT DATE: 20140214
